FAERS Safety Report 4503181-4 (Version None)
Quarter: 2004Q4

REPORT INFORMATION
  Report Type: 
  Country: None (occurrence: None)
  Receive Date: 20041112
  Receipt Date: 20041103
  Transmission Date: 20050328
  Serious: Yes (Other)
  Sender: FDA-Public Use
  Company Number: K200401698

PATIENT
  Age: 17 Year
  Sex: Female
  Weight: 61 kg

DRUGS (1)
  1. NORDETTE-21 [Suspect]
     Indication: MENORRHAGIA
     Dosage: 1 ORAL
     Route: 048
     Dates: start: 20020601, end: 20040901

REACTIONS (5)
  - BLINDNESS [None]
  - CIRCULATORY COLLAPSE [None]
  - DEAFNESS [None]
  - EYE ROLLING [None]
  - TINNITUS [None]
